FAERS Safety Report 7880736-0 (Version None)
Quarter: 2011Q4

REPORT INFORMATION
  Report Type: 
  Country: None (occurrence: None)
  Receive Date: 20111101
  Receipt Date: 20111019
  Transmission Date: 20120403
  Serious: Yes (Congenital Anomaly)
  Sender: FDA-Public Use
  Company Number: SE-ELI_LILLY_AND_COMPANY-SE201110005658

PATIENT

DRUGS (4)
  1. FLUOXETINE HYDROCHLORIDE [Suspect]
     Route: 064
  2. ALPRAZOLAM [Concomitant]
     Route: 064
  3. ALPRAZOLAM [Concomitant]
     Route: 064
  4. FLUOXETINE HYDROCHLORIDE [Suspect]
     Route: 064

REACTIONS (2)
  - MATERNAL EXPOSURE DURING PREGNANCY [None]
  - MEGACOLON [None]
